FAERS Safety Report 12535642 (Version 2)
Quarter: 2016Q3

REPORT INFORMATION
  Report Type: Report from Study
  Country: RO (occurrence: RO)
  Receive Date: 20160707
  Receipt Date: 20160726
  Transmission Date: 20161109
  Serious: Yes (Other)
  Sender: FDA-Public Use
  Company Number: RO-TEVA-673808ISR

PATIENT
  Age: 5 Year
  Sex: Female
  Weight: 17 kg

DRUGS (6)
  1. TBO-FILGRASTIM [Suspect]
     Active Substance: TBO-FILGRASTIM
     Indication: NEUTROPENIA
     Dosage: 75 MICROGRAM DAILY;
     Route: 058
     Dates: start: 20160605, end: 20160609
  2. D-ACTINOMICYN [Suspect]
     Active Substance: DACTINOMYCIN
     Indication: CHEMOTHERAPY
     Dosage: 1 MILLIGRAM DAILY; LAST DOSE PRIOR TO AE: 03-JUN-2016
     Route: 042
     Dates: start: 20160603
  3. TRIMETOPRIME/SULPHAMETOXAZOL [Concomitant]
     Indication: INFECTION
     Dosage: 1 DF CONTAINS: 40 TRIMETOPRIME/200MG SULPHAMETOXAZOL 2/DAY PO
     Route: 048
     Dates: start: 20160610, end: 20160623
  4. TBO-FILGRASTIM [Suspect]
     Active Substance: TBO-FILGRASTIM
     Indication: FEBRILE NEUTROPENIA
  5. CEFTRIAXONE. [Concomitant]
     Active Substance: CEFTRIAXONE
     Indication: PROPHYLAXIS
     Dosage: 1500 MILLIGRAM DAILY;
     Route: 042
     Dates: start: 20160604, end: 20160614
  6. IFOSFAMIDE. [Suspect]
     Active Substance: IFOSFAMIDE
     Indication: CHEMOTHERAPY
     Dosage: 2000 MILLIGRAM DAILY; LAST DOSE PRIOR TO AE :04-JUN-2016
     Route: 042
     Dates: start: 20160603

REACTIONS (2)
  - Aspartate aminotransferase increased [Recovered/Resolved]
  - Alanine aminotransferase increased [Recovered/Resolved]

NARRATIVE: CASE EVENT DATE: 20160624
